FAERS Safety Report 20074662 (Version 1)
Quarter: 2021Q4

REPORT INFORMATION
  Report Type: Spontaneous
  Country: DE (occurrence: DE)
  Receive Date: 20211116
  Receipt Date: 20211116
  Transmission Date: 20220303
  Serious: Yes (Hospitalization)
  Sender: FDA-Public Use
  Company Number: DE-002147023-NVSC2021DE186734

PATIENT
  Age: 6 Month

DRUGS (8)
  1. PROPRANOLOL [Suspect]
     Active Substance: PROPRANOLOL HYDROCHLORIDE
     Indication: Product used for unknown indication
     Dosage: UNK
     Route: 065
  2. SPIRONOLACTONE [Suspect]
     Active Substance: SPIRONOLACTONE
     Indication: Product used for unknown indication
     Dosage: UNK
     Route: 065
  3. OMEPRAZOLE [Suspect]
     Active Substance: OMEPRAZOLE
     Indication: Product used for unknown indication
     Dosage: UNK
     Route: 065
  4. FUROSEMIDE [Suspect]
     Active Substance: FUROSEMIDE
     Indication: Product used for unknown indication
     Dosage: UNK
     Route: 065
  5. TRAMETINIB [Suspect]
     Active Substance: TRAMETINIB
     Indication: Cardiac hypertrophy
     Dosage: 0.02 MG/KG, QD
     Route: 065
  6. TRAMETINIB [Suspect]
     Active Substance: TRAMETINIB
     Indication: Cardiac failure
     Dosage: UNK, (25% DOSE REDUCTION)
     Route: 065
  7. TRAMETINIB [Suspect]
     Active Substance: TRAMETINIB
     Indication: Obstruction
  8. TRAMETINIB [Suspect]
     Active Substance: TRAMETINIB
     Indication: Effusion

REACTIONS (2)
  - Dehydration [Recovered/Resolved]
  - Hypernatraemia [Recovered/Resolved]
